FAERS Safety Report 8458119-4 (Version None)
Quarter: 2012Q2

REPORT INFORMATION
  Report Type: 
  Country: None (occurrence: None)
  Receive Date: 20120622
  Receipt Date: 20120612
  Transmission Date: 20120825
  Serious: Yes (Hospitalization)
  Sender: FDA-Public Use
  Company Number: GB-PERRIGO-12GB005058

PATIENT
  Age: 69 Year
  Sex: Male

DRUGS (1)
  1. NAPROXEN [Suspect]
     Indication: GOUT
     Dosage: 500 MG, UNK
     Route: 048
     Dates: start: 20110601, end: 20120531

REACTIONS (3)
  - HAEMATEMESIS [None]
  - GASTROINTESTINAL HAEMORRHAGE [None]
  - HAEMOGLOBIN DECREASED [None]
